FAERS Safety Report 6865805-6 (Version None)
Quarter: 2010Q3

REPORT INFORMATION
  Report Type: 
  Country: None (occurrence: None)
  Receive Date: 20100720
  Receipt Date: 20100709
  Transmission Date: 20110219
  Serious: Yes (Other)
  Sender: FDA-Public Use
  Company Number: 003204

PATIENT
  Sex: Female
  Weight: 43.4 kg

DRUGS (6)
  1. CERTOLIZUMAB PEGOL (CERTOLIZUMAB PEGOL) [Suspect]
     Indication: RHEUMATOID ARTHRITIS
     Dosage: (200 MG 1X/2 WEEKS SUBCUTANEOUS) ; (400 MG 1X/2 WEEKS)
     Route: 058
     Dates: start: 20050906, end: 20060822
  2. CERTOLIZUMAB PEGOL (CERTOLIZUMAB PEGOL) [Suspect]
     Indication: RHEUMATOID ARTHRITIS
     Dosage: (200 MG 1X/2 WEEKS SUBCUTANEOUS) ; (400 MG 1X/2 WEEKS)
     Route: 058
     Dates: start: 20060904
  3. METHOTREXATE [Concomitant]
  4. IBUPROFEN [Concomitant]
  5. PREDNISONE [Concomitant]
  6. CONTRACEPTIVES NOS [Concomitant]

REACTIONS (1)
  - NEPHROLITHIASIS [None]
